FAERS Safety Report 7238803-0 (Version None)
Quarter: 2011Q1

REPORT INFORMATION
  Report Type: 
  Country: None (occurrence: None)
  Receive Date: 20110119
  Receipt Date: 20110119
  Transmission Date: 20110831
  Serious: Yes (Hospitalization)
  Sender: FDA-Public Use
  Company Number: None

PATIENT
  Sex: Male
  Weight: 90.3 kg

DRUGS (3)
  1. PEG-L ASPARAGINASE (K-H) [Suspect]
     Dosage: 10275 IU
  2. METHOTREXATE [Suspect]
     Dosage: 1230 MG
  3. VINCRISTINE SULFATE [Suspect]
     Dosage: 6 MG

REACTIONS (8)
  - DYSARTHRIA [None]
  - EYELID FUNCTION DISORDER [None]
  - VIITH NERVE PARALYSIS [None]
  - CEREBRAL INFARCTION [None]
  - PERIVENTRICULAR LEUKOMALACIA [None]
  - NIH STROKE SCALE ABNORMAL [None]
  - APHASIA [None]
  - TONGUE DISORDER [None]
